FAERS Safety Report 9380797 (Version 1)
Quarter: 2013Q3

REPORT INFORMATION
  Report Type: Report from Study
  Country: PK (occurrence: PK)
  Receive Date: 20130702
  Receipt Date: 20130702
  Transmission Date: 20140515
  Serious: Yes (Life-Threatening, Hospitalization, Other)
  Sender: FDA-Public Use
  Company Number: PK-ELI_LILLY_AND_COMPANY-PK201306007783

PATIENT
  Sex: Female

DRUGS (2)
  1. HUMAN INSULIN (RDNA ORIGIN) REGULAR [Suspect]
     Indication: DIABETES MELLITUS
     Dosage: 26 U, UNK
     Route: 058
     Dates: start: 20130528
  2. HUMULIN 30% REGULAR, 70% NPH [Suspect]
     Dosage: UNK, QD

REACTIONS (3)
  - Diabetic foot [Recovering/Resolving]
  - Hypoglycaemia [Recovering/Resolving]
  - Leg amputation [None]
